FAERS Safety Report 11957199 (Version 3)
Quarter: 2016Q1

REPORT INFORMATION
  Report Type: Spontaneous
  Country: IT (occurrence: IT)
  Receive Date: 20160126
  Receipt Date: 20160308
  Transmission Date: 20160526
  Serious: Yes (Other)
  Sender: FDA-Public Use
  Company Number: IT-JNJFOC-20140824605

PATIENT
  Age: 53 Year
  Sex: Female

DRUGS (5)
  1. TRABECTEDIN [Suspect]
     Active Substance: TRABECTEDIN
     Indication: LEIOMYOSARCOMA
     Route: 042
  2. TRABECTEDIN [Suspect]
     Active Substance: TRABECTEDIN
     Indication: METASTASES TO LUNG
     Route: 042
     Dates: start: 20130302, end: 20140109
  3. TRABECTEDIN [Suspect]
     Active Substance: TRABECTEDIN
     Indication: METASTASES TO LUNG
     Route: 042
  4. PAROXETINE [Concomitant]
     Active Substance: PAROXETINE\PAROXETINE HYDROCHLORIDE
     Route: 048
  5. TRABECTEDIN [Suspect]
     Active Substance: TRABECTEDIN
     Indication: LEIOMYOSARCOMA
     Route: 042
     Dates: start: 20130302, end: 20140109

REACTIONS (5)
  - Neutropenia [Unknown]
  - Asthenia [Recovered/Resolved]
  - Transaminases increased [Recovered/Resolved]
  - Neutropenia [Recovered/Resolved]
  - Transaminases increased [Unknown]

NARRATIVE: CASE EVENT DATE: 20130318
